FAERS Safety Report 8313931-7 (Version None)
Quarter: 2012Q2

REPORT INFORMATION
  Report Type: 
  Country: None (occurrence: None)
  Receive Date: 20120426
  Receipt Date: 20120426
  Transmission Date: 20120825
  Serious: No
  Sender: FDA-Public Use
  Company Number: None

PATIENT
  Age: 61 Year
  Sex: Female
  Weight: 82.553 kg

DRUGS (2)
  1. TRIAMTERENE [Concomitant]
  2. TRIAMTERENE [Suspect]
     Indication: OEDEMA
     Dosage: 1 DAILY
     Route: 048
     Dates: start: 20120418, end: 20120425

REACTIONS (4)
  - PAIN IN EXTREMITY [None]
  - PERIPHERAL COLDNESS [None]
  - MOVEMENT DISORDER [None]
  - MUSCLE SPASMS [None]
